FAERS Safety Report 6290780-5 (Version None)
Quarter: 2009Q3

REPORT INFORMATION
  Report Type: 
  Country: None (occurrence: None)
  Receive Date: 20090729
  Receipt Date: 20090729
  Transmission Date: 20100115
  Serious: Yes (Other)
  Sender: FDA-Public Use
  Company Number: None

PATIENT
  Age: 63 Year
  Sex: Male
  Weight: 85.2762 kg

DRUGS (2)
  1. LISINOPRIL [Suspect]
     Indication: EXERCISE TOLERANCE DECREASED
     Dosage: 1 PILL DAILY PO
     Route: 048
     Dates: start: 20090627, end: 20090727
  2. LISINOPRIL [Suspect]
     Indication: SINUS BRADYCARDIA
     Dosage: 1 PILL DAILY PO
     Route: 048
     Dates: start: 20090627, end: 20090727

REACTIONS (7)
  - DYSPNOEA [None]
  - EXERCISE TOLERANCE DECREASED [None]
  - FATIGUE [None]
  - HEART RATE DECREASED [None]
  - PRODUCT COLOUR ISSUE [None]
  - PRODUCT LABEL ISSUE [None]
  - PRODUCT SUBSTITUTION ISSUE [None]
